FAERS Safety Report 9257089 (Version 1)
Quarter: 2013Q1

REPORT INFORMATION
  Report Type: Spontaneous
  Country: US (occurrence: None)
  Receive Date: 20121212
  Receipt Date: 20121212
  Transmission Date: 20140127
  Serious: No
  Sender: FDA-Public Use
  Company Number: 1207USA002610

PATIENT
  Age: 63 Year
  Sex: Male
  Weight: 83.4 kg

DRUGS (3)
  1. PEGINTRON [Suspect]
     Indication: HEPATITIS C
     Dosage: 150 UNK, QW
     Dates: start: 20120106, end: 20120705
  2. VICTRELIS [Suspect]
     Dosage: 2 DF, TID, ORAL
     Route: 048
     Dates: start: 20120127, end: 20120705
  3. RIBASPHERE [Suspect]
     Dosage: 3 DF, BID, ORAL
     Route: 048
     Dates: start: 20120106, end: 20120705

REACTIONS (3)
  - Viral load increased [None]
  - Anaemia [None]
  - Drug ineffective [None]
